FAERS Safety Report 8732941 (Version 2)
Quarter: 2012Q4

REPORT INFORMATION
  Report Type: 
  Country: US (occurrence: US)
  Receive Date: 20120820
  Receipt Date: 20120907
  Transmission Date: 20130627
  Serious: No
  Sender: FDA-Public Use
  Company Number: US-AMGEN-USASP2012048831

PATIENT
  Sex: Female
  Weight: 82.54 kg

DRUGS (10)
  1. PROLIA [Suspect]
     Indication: OSTEOPOROSIS POSTMENOPAUSAL
     Dosage: 60 mg, q6mo
     Route: 058
     Dates: start: 20120629
  2. SYNTHROID [Concomitant]
     Indication: HYPOTHYROIDISM
     Dosage: 0.1 mg, qd
     Route: 048
  3. FENOFIBRATE ACTAVIS [Concomitant]
     Indication: HYPERLIPIDAEMIA
     Dosage: 160 mg, qd
     Route: 048
  4. ZETIA [Concomitant]
     Indication: HYPERLIPIDAEMIA
     Dosage: 10 mg, qd
  5. CITRACAL                           /00751520/ [Concomitant]
     Indication: VITAMIN SUPPLEMENTATION
     Dosage: UNK
     Route: 048
  6. MULTIVITAMIN                       /00097801/ [Concomitant]
     Indication: VITAMIN SUPPLEMENTATION
     Dosage: UNK
     Route: 048
  7. FISH OIL [Concomitant]
     Indication: VITAMIN SUPPLEMENTATION
     Dosage: UNK
     Route: 048
  8. VITAMIN C                          /00008001/ [Concomitant]
     Indication: VITAMIN SUPPLEMENTATION
     Dosage: UNK
     Route: 048
  9. VITAMIN D /00107901/ [Concomitant]
     Indication: VITAMIN SUPPLEMENTATION
     Route: 048
  10. GLUCOSAMINE [Concomitant]
     Dosage: UNK
     Route: 048

REACTIONS (4)
  - Nausea [Not Recovered/Not Resolved]
  - Vomiting [Not Recovered/Not Resolved]
  - Diarrhoea [Recovered/Resolved]
  - Liver function test abnormal [Recovered/Resolved]
